FAERS Safety Report 6639644-5 (Version None)
Quarter: 2010Q1

REPORT INFORMATION
  Report Type: 
  Country: None (occurrence: None)
  Receive Date: 20100315
  Receipt Date: 20100226
  Transmission Date: 20100710
  Serious: Yes (Other)
  Sender: FDA-Public Use
  Company Number: DSA_42760_2010

PATIENT
  Sex: Female

DRUGS (5)
  1. DILTIAZEM [Suspect]
     Indication: HYPERTENSION
     Dosage: 180 MG QD, DF
     Dates: start: 20100217, end: 20100218
  2. DILTIAZEM [Suspect]
     Indication: HYPERTENSION
     Dosage: 180 MG QD, DF
     Dates: start: 20100219, end: 20100221
  3. BELOC ZOK (BELOC ZOK - METPROLOL SUCCINATE) (NOT SPECIFIED) [Suspect]
     Indication: HYPERTENSION
     Dosage: 1/4 TABLET IN THE MORNING
     Dates: start: 20100217, end: 20100218
  4. ATACAND [Concomitant]
  5. CORTISONE ACETATE [Concomitant]

REACTIONS (2)
  - BLOOD PRESSURE FLUCTUATION [None]
  - HEART RATE INCREASED [None]
